FAERS Safety Report 10793477 (Version 1)
Quarter: 2015Q1

REPORT INFORMATION
  Report Type: Spontaneous
  Country: US (occurrence: US)
  Receive Date: 20150213
  Receipt Date: 20150213
  Transmission Date: 20150721
  Serious: No
  Sender: FDA-Public Use
  Company Number: US-PFIZER INC-2015056576

PATIENT
  Age: 52 Year
  Sex: Female
  Weight: 54.42 kg

DRUGS (2)
  1. CELECOXIB. [Suspect]
     Active Substance: CELECOXIB
     Indication: SPONDYLITIS
     Dosage: 200 MG, UNK
  2. URSODIOL. [Concomitant]
     Active Substance: URSODIOL
     Dosage: UNK

REACTIONS (2)
  - Weight increased [Recovered/Resolved]
  - Drug ineffective [Unknown]
